FAERS Safety Report 25701621 (Version 1)
Quarter: 2025Q3

REPORT INFORMATION
  Report Type: Spontaneous
  Country: US (occurrence: US)
  Receive Date: 20250819
  Receipt Date: 20250819
  Transmission Date: 20251021
  Serious: No
  Sender: REGENERON
  Company Number: US-REGENERON PHARMACEUTICALS, INC.-2024-120348

PATIENT
  Sex: Female

DRUGS (2)
  1. PRALUENT [Suspect]
     Active Substance: ALIROCUMAB
     Indication: Blood cholesterol increased
     Dosage: 150 MG, Q2W (EVERY 2 WEEKS), 150MG/ ML
     Route: 058
     Dates: start: 202406, end: 2024
  2. PRALUENT [Suspect]
     Active Substance: ALIROCUMAB
     Indication: Low density lipoprotein increased
     Dosage: 150 MG, Q4W (EVERY 4 WEEKS), STRENGTH: 150MG/ ML
     Route: 058
     Dates: start: 2024

REACTIONS (6)
  - Walking aid user [Unknown]
  - Visual impairment [Unknown]
  - Lip pruritus [Recovering/Resolving]
  - Urticaria [Unknown]
  - Pruritus [Recovering/Resolving]
  - Product prescribing error [Unknown]

NARRATIVE: CASE EVENT DATE: 20240601
